FAERS Safety Report 9777620 (Version 2)
Quarter: 2014Q1

REPORT INFORMATION
  Report Type: Spontaneous
  Country: US (occurrence: US)
  Receive Date: 20131222
  Receipt Date: 20140213
  Transmission Date: 20141002
  Serious: Yes (Other)
  Sender: FDA-Public Use
  Company Number: US-009507513-1312USA009188

PATIENT
  Sex: Female

DRUGS (2)
  1. NEXPLANON [Suspect]
     Indication: CONTRACEPTION
     Dosage: THREE-YEAR DEVICE
     Route: 059
     Dates: start: 20120821
  2. ANTIMICROBIAL (UNSPECIFIED) [Concomitant]
     Indication: KIDNEY INFECTION
     Dosage: UNK

REACTIONS (2)
  - Abortion [Unknown]
  - Unintended pregnancy [Recovered/Resolved]
